FAERS Safety Report 11805657 (Version 1)
Quarter: 2015Q4

REPORT INFORMATION
  Report Type: Spontaneous
  Country: US (occurrence: US)
  Receive Date: 20151207
  Receipt Date: 20151207
  Transmission Date: 20160305
  Serious: No
  Sender: FDA-Public Use
  Company Number: PHEH2015US025104

PATIENT
  Sex: Female

DRUGS (1)
  1. TASIGNA [Suspect]
     Active Substance: NILOTINIB
     Indication: CHRONIC MYELOID LEUKAEMIA
     Route: 065

REACTIONS (15)
  - Dry mouth [Unknown]
  - Myalgia [Unknown]
  - Affect lability [Unknown]
  - Decreased interest [Unknown]
  - Nausea [Unknown]
  - Paraesthesia [Unknown]
  - Weight increased [Unknown]
  - Muscle spasms [Unknown]
  - Fatigue [Unknown]
  - Arthralgia [Unknown]
  - Abdominal distension [Unknown]
  - Hyperhidrosis [Unknown]
  - Disturbance in attention [Unknown]
  - Skin disorder [Unknown]
  - Alopecia [Unknown]
